FAERS Safety Report 10246216 (Version 1)
Quarter: 2014Q2

REPORT INFORMATION
  Report Type: Spontaneous
  Country: US (occurrence: US)
  Receive Date: 20140619
  Receipt Date: 20140619
  Transmission Date: 20141212
  Serious: Yes (Other)
  Sender: FDA-Public Use
  Company Number: US-BAYER-2014-090366

PATIENT
  Age: 36 Year
  Sex: Female
  Weight: 169 kg

DRUGS (9)
  1. YAZ [Suspect]
  2. YASMIN [Suspect]
     Indication: ORAL CONTRACEPTION
  3. HYDROCODONE/ACETAMINOPHEN [Concomitant]
     Dosage: UNK
     Dates: start: 20071025
  4. PROMETHAZINE [Concomitant]
     Indication: NAUSEA
     Dosage: UNK UNK, QID
     Route: 048
     Dates: start: 20071020
  5. PROMETHAZINE [Concomitant]
     Indication: VOMITING
  6. SEASONALE [Concomitant]
     Indication: CONTRACEPTION
     Dosage: UNK
     Dates: start: 20120712
  7. XANAX [Concomitant]
     Dosage: 0.25 MG, UNK
  8. LEVONORGESTREL W/ETHINYLESTRADIOL [Concomitant]
  9. LEXAPRO [Concomitant]
     Dosage: 10 MG, UNK

REACTIONS (3)
  - Pulmonary embolism [None]
  - Thrombophlebitis superficial [None]
  - Deep vein thrombosis [None]
